FAERS Safety Report 12746096 (Version 4)
Quarter: 2017Q1

REPORT INFORMATION
  Report Type: Spontaneous
  Country: FR (occurrence: FR)
  Receive Date: 20160915
  Receipt Date: 20170131
  Transmission Date: 20170428
  Serious: Yes (Other)
  Sender: FDA-Public Use
  Company Number: FR-009507513-1208FRA009886

PATIENT
  Sex: Female
  Weight: 65 kg

DRUGS (2)
  1. IMPLANON [Suspect]
     Active Substance: ETONOGESTREL
     Dosage: 1 IMPLANT, UNK
     Route: 058
     Dates: start: 2010
  2. IMPLANON [Suspect]
     Active Substance: ETONOGESTREL
     Indication: PRODUCT USED FOR UNKNOWN INDICATION
     Dosage: 1 IMPLANT, UNK
     Route: 059

REACTIONS (9)
  - Discomfort [Unknown]
  - Incorrect drug administration duration [Not Recovered/Not Resolved]
  - Metrorrhagia [Not Recovered/Not Resolved]
  - Weight increased [Unknown]
  - Device difficult to use [Not Recovered/Not Resolved]
  - Pain [Unknown]
  - Complication associated with device [Not Recovered/Not Resolved]
  - Amenorrhoea [Unknown]
  - General anaesthesia [Unknown]

NARRATIVE: CASE EVENT DATE: 2012
